FAERS Safety Report 5370244-3 (Version None)
Quarter: 2007Q2

REPORT INFORMATION
  Report Type: 
  Country: None (occurrence: None)
  Receive Date: 20070626
  Receipt Date: 20070614
  Transmission Date: 20071010
  Serious: Yes (Other)
  Sender: FDA-Public Use
  Company Number: FR-ASTRAZENECA-2007CG00708

PATIENT
  Age: 553 Month
  Sex: Male
  Weight: 74 kg

DRUGS (6)
  1. CRESTOR [Suspect]
     Route: 048
     Dates: start: 20050629, end: 20051101
  2. CRESTOR [Suspect]
     Route: 048
     Dates: start: 20051101, end: 20060301
  3. CRESTOR [Suspect]
     Route: 048
     Dates: start: 20060301, end: 20070507
  4. TENORMIN [Concomitant]
     Route: 048
     Dates: start: 20040701
  5. TRIATEC [Concomitant]
     Route: 048
     Dates: start: 20040701
  6. ASPIRIN [Concomitant]
     Route: 048
     Dates: start: 20040701

REACTIONS (2)
  - FATIGUE [None]
  - TENDONITIS [None]
